FAERS Safety Report 7080586-1 (Version None)
Quarter: 2010Q4

REPORT INFORMATION
  Report Type: 
  Country: None (occurrence: None)
  Receive Date: 20101103
  Receipt Date: 20101028
  Transmission Date: 20110411
  Serious: Yes (Hospitalization)
  Sender: FDA-Public Use
  Company Number: JP-SANOFI-AVENTIS-2010SA063062

PATIENT
  Age: 69 Year
  Sex: Female

DRUGS (8)
  1. ELPLAT [Suspect]
     Indication: COLON CANCER METASTATIC
     Route: 041
     Dates: start: 20100507, end: 20100507
  2. ELPLAT [Suspect]
     Route: 041
     Dates: start: 20100924, end: 20100924
  3. FLUOROURACIL [Suspect]
     Indication: COLON CANCER METASTATIC
     Route: 042
     Dates: start: 20100507, end: 20100507
  4. FLUOROURACIL [Suspect]
     Route: 042
     Dates: start: 20100924, end: 20100924
  5. AVASTIN [Suspect]
     Indication: COLON CANCER METASTATIC
     Route: 042
     Dates: start: 20100716, end: 20100716
  6. AVASTIN [Suspect]
     Route: 042
     Dates: start: 20100924, end: 20100924
  7. CALCIUM LEVOFOLINATE [Suspect]
     Indication: COLON CANCER METASTATIC
     Route: 042
     Dates: start: 20100507, end: 20100507
  8. CALCIUM LEVOFOLINATE [Suspect]
     Route: 042
     Dates: start: 20100924, end: 20100924

REACTIONS (3)
  - GASTROINTESTINAL PERFORATION [None]
  - NEUTROPHIL COUNT DECREASED [None]
  - PERITONITIS [None]
